FAERS Safety Report 18461212 (Version 4)
Quarter: 2021Q2

REPORT INFORMATION
  Report Type: Spontaneous
  Country: US (occurrence: US)
  Receive Date: 20201104
  Receipt Date: 20210623
  Transmission Date: 20210717
  Serious: No
  Sender: FDA-Public Use
  Company Number: NVSC2020US295008

PATIENT
  Sex: Female

DRUGS (3)
  1. PROMACTA [Suspect]
     Active Substance: ELTROMBOPAG OLAMINE
     Indication: IMMUNE THROMBOCYTOPENIA
     Dosage: 25 MG, QOD(EVERY OTHER DAY)
     Route: 048
     Dates: start: 20200825
  2. PROMACTA [Suspect]
     Active Substance: ELTROMBOPAG OLAMINE
     Dosage: 25 MG (DAILY)
     Route: 048
     Dates: start: 20200821
  3. PROMACTA [Suspect]
     Active Substance: ELTROMBOPAG OLAMINE
     Dosage: 25 MG, QOD
     Route: 048
     Dates: start: 202008

REACTIONS (7)
  - Urticaria [Unknown]
  - Vision blurred [Unknown]
  - Pruritus [Unknown]
  - Visual impairment [Unknown]
  - Chromaturia [Unknown]
  - Mass [Unknown]
  - Paraesthesia [Unknown]
